FAERS Safety Report 4497742-9 (Version None)
Quarter: 2004Q4

REPORT INFORMATION
  Report Type: 
  Country: None (occurrence: None)
  Receive Date: 20041110
  Receipt Date: 20040907
  Transmission Date: 20050328
  Serious: Yes (Death, Hospitalization)
  Sender: FDA-Public Use
  Company Number: DE-BRISTOL-MYERS SQUIBB COMPANY-12693925

PATIENT
  Age: 47 Year
  Sex: Female
  Weight: 61 kg

DRUGS (2)
  1. CARBOPLATIN [Suspect]
     Indication: CERVIX CARCINOMA
     Dosage: 5 CYCLES TOTAL FROM 01JUL04 - 21OCT04
     Route: 042
     Dates: start: 20040826, end: 20040826
  2. CAELYX [Suspect]
     Indication: CERVIX CARCINOMA
     Dosage: 5 CYCLES TOTAL FROM 01JUL04 - 21OCT04
     Route: 042
     Dates: start: 20040826, end: 20040826

REACTIONS (5)
  - CERVIX CARCINOMA [None]
  - CONFUSIONAL STATE [None]
  - MALIGNANT NEOPLASM PROGRESSION [None]
  - SOMNOLENCE [None]
  - SUBILEUS [None]
